FAERS Safety Report 7048141-7 (Version None)
Quarter: 2010Q4

REPORT INFORMATION
  Report Type: 
  Country: None (occurrence: None)
  Receive Date: 20101015
  Receipt Date: 20101007
  Transmission Date: 20110411
  Serious: Yes (Disabling)
  Sender: FDA-Public Use
  Company Number: CA-ABBOTT-10P-028-0676840-00

PATIENT
  Sex: Female

DRUGS (9)
  1. HUMIRA [Suspect]
     Indication: PSORIATIC ARTHROPATHY
     Route: 058
     Dates: start: 20100630, end: 20101005
  2. MONOCOR [Concomitant]
     Indication: CARDIAC DISORDER
     Route: 048
  3. APO-BISOPROLOL [Concomitant]
     Indication: CARDIAC DISORDER
     Route: 048
  4. NOVO-PREDNISONE [Concomitant]
     Indication: PRODUCT USED FOR UNKNOWN INDICATION
     Route: 048
  5. TARO-WARFARIN [Concomitant]
     Indication: CARDIAC DISORDER
     Route: 048
  6. APO-RAMIPRIL [Concomitant]
     Indication: CARDIAC DISORDER
     Route: 048
  7. LANOXIN [Concomitant]
     Indication: CARDIAC DISORDER
     Route: 048
  8. APO-DILTIAZEM [Concomitant]
     Indication: CARDIAC DISORDER
     Route: 048
  9. NOVO-ALENDRONATE [Concomitant]
     Indication: PRODUCT USED FOR UNKNOWN INDICATION
     Route: 048

REACTIONS (4)
  - ABASIA [None]
  - DRUG INEFFECTIVE [None]
  - JOINT RANGE OF MOTION DECREASED [None]
  - WHEELCHAIR USER [None]
